FAERS Safety Report 7276776-5 (Version None)
Quarter: 2011Q1

REPORT INFORMATION
  Report Type: 
  Country: None (occurrence: None)
  Receive Date: 20110207
  Receipt Date: 20110125
  Transmission Date: 20110831
  Serious: Yes (Death, Hospitalization, Other)
  Sender: FDA-Public Use
  Company Number: US-PAR PHARMACEUTICAL, INC-2011SCPR002657

PATIENT
  Age: 59 Year
  Sex: Female

DRUGS (9)
  1. VINCRISTINE [Suspect]
     Indication: MANTLE CELL LYMPHOMA STAGE IV
     Dosage: UNK
     Route: 065
  2. DOXORUBICIN [Suspect]
     Indication: MANTLE CELL LYMPHOMA STAGE IV
     Dosage: UNK
     Route: 065
  3. CARMUSTINE [Suspect]
     Indication: MANTLE CELL LYMPHOMA STAGE IV
     Dosage: 570 MG, ON DAY -6
     Route: 042
  4. ETOPOSIDE [Suspect]
     Indication: MANTLE CELL LYMPHOMA STAGE IV
     Dosage: 190 MG, BID FOR 8 DOSES ON DAYS -5 TO -2
     Route: 042
  5. RITUXIMAB [Suspect]
     Indication: MANTLE CELL LYMPHOMA STAGE IV
     Dosage: UNK
     Route: 065
  6. MELPHALAN [Suspect]
     Indication: MANTLE CELL LYMPHOMA STAGE IV
     Dosage: 265 MG, ON DAY -1.
     Route: 042
  7. DEXAMETHASONE [Suspect]
     Indication: MANTLE CELL LYMPHOMA STAGE IV
     Dosage: UNK
     Route: 065
  8. CYCLOPHOSPHAMIDE [Suspect]
     Indication: MANTLE CELL LYMPHOMA STAGE IV
     Dosage: UNK
     Route: 065
  9. CYTARABINE [Suspect]
     Indication: MANTLE CELL LYMPHOMA STAGE IV
     Dosage: 190 MG, BID FOR 8 DOSES ON DAYS -5 TO -2
     Route: 042

REACTIONS (8)
  - BRADYCARDIA [None]
  - PNEUMONIA [None]
  - PNEUMOTHORAX [None]
  - RENAL FAILURE [None]
  - VENTRICULAR TACHYCARDIA [None]
  - CARDIAC ARREST [None]
  - PULMONARY OEDEMA [None]
  - DEATH [None]
